FAERS Safety Report 13568199 (Version 2)
Quarter: 2017Q2

REPORT INFORMATION
  Report Type: Spontaneous
  Country: PA (occurrence: PA)
  Receive Date: 20170522
  Receipt Date: 20170616
  Transmission Date: 20170830
  Serious: Yes (Hospitalization, Other)
  Sender: FDA-Public Use
  Company Number: PA-ABBVIE-17P-125-1978097-00

PATIENT
  Age: 10 Year
  Sex: Female

DRUGS (1)
  1. LUCRIN DEPOT [Suspect]
     Active Substance: LEUPROLIDE ACETATE
     Indication: PRECOCIOUS PUBERTY
     Route: 030
     Dates: start: 20161125, end: 20170222

REACTIONS (10)
  - Myoclonus [Recovering/Resolving]
  - Oedema peripheral [Recovering/Resolving]
  - Amaurosis [Unknown]
  - Vision blurred [Unknown]
  - Epistaxis [Unknown]
  - Muscle twitching [Recovering/Resolving]
  - Headache [Unknown]
  - Seizure [Unknown]
  - Pyrexia [Recovering/Resolving]
  - Seizure [Recovering/Resolving]

NARRATIVE: CASE EVENT DATE: 20170402
